FAERS Safety Report 7481817-6 (Version None)
Quarter: 2011Q2

REPORT INFORMATION
  Report Type: 
  Country: None (occurrence: None)
  Receive Date: 20110516
  Receipt Date: 20110510
  Transmission Date: 20111010
  Serious: Yes (Hospitalization, Other)
  Sender: FDA-Public Use
  Company Number: US-ALEXION-A201100682

PATIENT
  Sex: Female

DRUGS (2)
  1. SOLIRIS [Suspect]
     Indication: PAROXYSMAL NOCTURNAL HAEMOGLOBINURIA
     Dosage: UNK
     Route: 042
  2. ALBUTEROL [Suspect]
     Route: 055

REACTIONS (5)
  - VOMITING [None]
  - PAIN [None]
  - PNEUMONIA [None]
  - HYPERSENSITIVITY [None]
  - PYREXIA [None]
